FAERS Safety Report 4818185-1 (Version None)
Quarter: 2005Q4

REPORT INFORMATION
  Report Type: 
  Country: None (occurrence: None)
  Receive Date: 20051031
  Receipt Date: 20051031
  Transmission Date: 20060501
  Serious: Yes (Hospitalization)
  Sender: FDA-Public Use
  Company Number: None

PATIENT
  Age: 56 Year
  Sex: Male
  Weight: 53.0709 kg

DRUGS (1)
  1. GLIPIZIDE [Suspect]
     Dosage: 5 MG PO QD
     Route: 048
     Dates: start: 20050606, end: 20050702

REACTIONS (2)
  - HYPERGLYCAEMIA [None]
  - SYNCOPE [None]
